FAERS Safety Report 9201681 (Version 2)
Quarter: 2013Q2

REPORT INFORMATION
  Report Type: Report from Study
  Country: US (occurrence: US)
  Receive Date: 20130401
  Receipt Date: 20130529
  Transmission Date: 20140414
  Serious: Yes (Other)
  Sender: FDA-Public Use
  Company Number: PHEH2013US007260

PATIENT
  Age: 22 Year
  Sex: Female

DRUGS (8)
  1. TOBI [Suspect]
     Indication: CYSTIC FIBROSIS
     Dosage: 1 DF, 4 WEEKS EVERY MONTH
  2. LEVAQUIN [Concomitant]
     Dosage: 500 MG, UNK
     Route: 048
  3. FLONASE [Concomitant]
     Dosage: 0.05 %, UNK
  4. CREON [Concomitant]
     Dosage: 20 DF, UNK
     Route: 048
  5. ZITHROMAX [Concomitant]
     Dosage: 600 MG, UNK
     Route: 048
  6. ALBUTEROL [Concomitant]
     Dosage: 90 UG, UNK
  7. MIRALAX [Concomitant]
     Dosage: 3350
     Route: 048
  8. VIT D [Concomitant]
     Dosage: 50000 UNIT
     Route: 048

REACTIONS (1)
  - Pneumonia [Unknown]
